FAERS Safety Report 25572204 (Version 1)
Quarter: 2025Q3

REPORT INFORMATION
  Report Type: Spontaneous
  Country: US (occurrence: None)
  Receive Date: 20250716
  Receipt Date: 20250716
  Transmission Date: 20251020
  Serious: Yes (Hospitalization)
  Sender: FDA-CTU
  Company Number: None

PATIENT
  Age: 27 Year
  Sex: Female
  Weight: 49.9 kg

DRUGS (20)
  1. ALYFTREK [Suspect]
     Active Substance: DEUTIVACAFTOR\TEZACAFTOR\VANZACAFTOR
     Indication: Cystic fibrosis
     Dosage: FREQUENCY : DAILY;?
     Route: 048
     Dates: start: 20250331, end: 20250606
  2. albuterol hfa and nebulized solution [Concomitant]
  3. AMLODIPINE [Concomitant]
     Active Substance: AMLODIPINE BESYLATE
  4. CLONAZEPAM [Concomitant]
     Active Substance: CLONAZEPAM
  5. CREON [Concomitant]
     Active Substance: PANCRELIPASE AMYLASE\PANCRELIPASE LIPASE\PANCRELIPASE PROTEASE
  6. FLUOXETINE [Concomitant]
     Active Substance: FLUOXETINE HYDROCHLORIDE
  7. FLONASE [Concomitant]
     Active Substance: FLUTICASONE PROPIONATE
  8. FOLIC ACID [Concomitant]
     Active Substance: FOLIC ACID
  9. insulin glargine, insulin lispro [Concomitant]
  10. MILK OF MAGNESIA [Concomitant]
     Active Substance: MAGNESIUM HYDROXIDE
  11. MIRTAZAPINE [Concomitant]
     Active Substance: MIRTAZAPINE
  12. MVW D5000 [Concomitant]
  13. NORETHINDRONE [Concomitant]
     Active Substance: NORETHINDRONE
  14. OMALIZUMAB [Concomitant]
     Active Substance: OMALIZUMAB
  15. PANTOPRAZOLE [Concomitant]
     Active Substance: PANTOPRAZOLE
  16. PULMOZYME [Concomitant]
     Active Substance: DORNASE ALFA
  17. DOCUSATE SODIUM\SENNOSIDES [Concomitant]
     Active Substance: DOCUSATE SODIUM\SENNOSIDES
  18. VITAMIN D [Concomitant]
     Active Substance: VITAMIN D NOS
  19. TOBI PODHALER [Concomitant]
     Active Substance: TOBRAMYCIN
  20. TRELEGY ELLIPTA [Concomitant]
     Active Substance: FLUTICASONE FUROATE\UMECLIDINIUM BROMIDE\VILANTEROL TRIFENATATE

REACTIONS (4)
  - Pancreatitis acute [None]
  - Drug-induced liver injury [None]
  - Periportal oedema [None]
  - Lipase decreased [None]

NARRATIVE: CASE EVENT DATE: 20250606
